FAERS Safety Report 8213144-3 (Version None)
Quarter: 2012Q1

REPORT INFORMATION
  Report Type: 
  Country: None (occurrence: None)
  Receive Date: 20120315
  Receipt Date: 20120312
  Transmission Date: 20120608
  Serious: Yes (Death)
  Sender: FDA-Public Use
  Company Number: US-PFIZER INC-2012033167

PATIENT
  Sex: Male

DRUGS (1)
  1. ELLENCE [Suspect]
     Indication: OESOPHAGEAL CARCINOMA
     Dosage: 110 MG, EVERY 21 DAYS
     Dates: start: 20120130

REACTIONS (1)
  - MYOCARDIAL INFARCTION [None]
